FAERS Safety Report 6358226-6 (Version None)
Quarter: 2009Q3

REPORT INFORMATION
  Report Type: 
  Country: None (occurrence: None)
  Receive Date: 20090916
  Receipt Date: 20090908
  Transmission Date: 20100115
  Serious: Yes (Other)
  Sender: FDA-Public Use
  Company Number: US-ASTRAZENECA-2009SE12040

PATIENT
  Sex: Female

DRUGS (2)
  1. OMEPRAZOLE MAGNESIUM [Suspect]
  2. HUMIRA [Suspect]
     Dosage: 40 MG/ 0.8ML PREFILLED SYRINGE , 40 MG 1 IN 2 WK
     Route: 058
     Dates: start: 20090810

REACTIONS (2)
  - DYSARTHRIA [None]
  - EYELID PTOSIS [None]
